FAERS Safety Report 7358655-8 (Version None)
Quarter: 2011Q1

REPORT INFORMATION
  Report Type: 
  Country: None (occurrence: None)
  Receive Date: 20110317
  Receipt Date: 20110307
  Transmission Date: 20110831
  Serious: Yes (Other)
  Sender: FDA-Public Use
  Company Number: PHHY2011IT19135

PATIENT
  Age: 80 Year
  Sex: Female

DRUGS (1)
  1. MINOCYCLINE HCL [Suspect]
     Indication: DERMATITIS
     Dosage: 100 MG/DAY
     Dates: start: 20050201, end: 20060301

REACTIONS (7)
  - LEUKOPENIA [None]
  - ANAEMIA [None]
  - HEPATIC NECROSIS [None]
  - HEPATIC ENZYME INCREASED [None]
  - HEPATITIS ACUTE [None]
  - CHOLANGITIS [None]
  - DYSPHAGIA [None]
